FAERS Safety Report 4653292-8 (Version None)
Quarter: 2005Q2

REPORT INFORMATION
  Report Type: 
  Country: None (occurrence: None)
  Receive Date: 20050504
  Receipt Date: 20050504
  Transmission Date: 20051028
  Serious: Yes (Hospitalization)
  Sender: FDA-Public Use
  Company Number: None

PATIENT
  Age: 24 Year
  Sex: Male
  Weight: 104.3273 kg

DRUGS (1)
  1. PENICILLIN VK [Suspect]
     Indication: PHARYNGITIS STREPTOCOCCAL
     Dosage: 1000MG  PO BID
     Route: 048
     Dates: start: 20050417

REACTIONS (3)
  - CATHETERISATION CARDIAC ABNORMAL [None]
  - CHEST DISCOMFORT [None]
  - TROPONIN INCREASED [None]
